FAERS Safety Report 25953097 (Version 1)
Quarter: 2025Q4

REPORT INFORMATION
  Report Type: Spontaneous
  Country: GB (occurrence: GB)
  Receive Date: 20251023
  Receipt Date: 20251023
  Transmission Date: 20260118
  Serious: Yes (Life-Threatening, Other)
  Sender: FRESENIUS KABI
  Company Number: EU-LDELTA-NLLD0041940

PATIENT
  Age: 52 Year
  Sex: Male

DRUGS (4)
  1. ETOPOSIDE [Suspect]
     Active Substance: ETOPOSIDE
     Indication: Testis cancer
     Dosage: 4 CYCLES; EVERY 3 WEEKS
  2. CARBOPLATIN [Suspect]
     Active Substance: CARBOPLATIN
     Indication: Testis cancer
     Dosage: SINGLE CYCLE OF CARBOPLATIN
  3. CLOZAPINE [Suspect]
     Active Substance: CLOZAPINE
     Indication: Product used for unknown indication
     Dates: start: 20130425, end: 20250918
  4. CISPLATIN [Suspect]
     Active Substance: CISPLATIN
     Indication: Testis cancer
     Dosage: 4 CYCLES; EVERY 3 WEEKS

REACTIONS (8)
  - Agranulocytosis [Recovering/Resolving]
  - Leukopenia [Recovering/Resolving]
  - Thrombocytopenia [Not Recovered/Not Resolved]
  - Neutropenia [Recovering/Resolving]
  - Testis cancer [Not Recovered/Not Resolved]
  - Anaemia [Not Recovered/Not Resolved]
  - Off label use [Not Recovered/Not Resolved]
  - Contraindicated product administered [Not Recovered/Not Resolved]

NARRATIVE: CASE EVENT DATE: 20230829
